FAERS Safety Report 15401175 (Version 1)
Quarter: 2018Q4

REPORT INFORMATION
  Report Type: Spontaneous
  Country: US (occurrence: US)
  Receive Date: 20180919
  Receipt Date: 20180919
  Transmission Date: 20190204
  Serious: No
  Sender: FDA-Public Use
  Company Number: US-TITAN PHARMACEUTICALS, INC.-2018BBN00073

PATIENT
  Age: 41 Year
  Sex: Male

DRUGS (1)
  1. PROBUPHINE [Suspect]
     Active Substance: BUPRENORPHINE HYDROCHLORIDE
     Dosage: UNK
     Route: 059
     Dates: end: 201807

REACTIONS (4)
  - Implant site scar [Not Recovered/Not Resolved]
  - Device breakage [Recovered/Resolved]
  - Procedural pain [Recovered/Resolved]
  - Implant site pain [Not Recovered/Not Resolved]

NARRATIVE: CASE EVENT DATE: 201807
